FAERS Safety Report 16922850 (Version 1)
Quarter: 2019Q4

REPORT INFORMATION
  Report Type: Spontaneous
  Country: CA (occurrence: CA)
  Receive Date: 20191016
  Receipt Date: 20191016
  Transmission Date: 20200122
  Serious: Yes (Death)
  Sender: FDA-Public Use
  Company Number: CA-TEVA-2019-CA-1122194

PATIENT
  Age: 60 Year
  Sex: Female

DRUGS (12)
  1. DIGOXIN. [Concomitant]
     Active Substance: DIGOXIN
  2. SILDENAFIL CITRATE. [Suspect]
     Active Substance: SILDENAFIL CITRATE
     Indication: PULMONARY HYPERTENSION
     Route: 048
  3. CIPRALEX [Concomitant]
     Active Substance: ESCITALOPRAM OXALATE
  4. SYMBICORT [Concomitant]
     Active Substance: BUDESONIDE\FORMOTEROL FUMARATE DIHYDRATE
  5. DIAMICRON [Concomitant]
     Active Substance: GLICLAZIDE
  6. SPIRIVA [Concomitant]
     Active Substance: TIOTROPIUM BROMIDE MONOHYDRATE
  7. WARFARIN [Concomitant]
     Active Substance: WARFARIN
  8. ERGOCALCIFEROL. [Concomitant]
     Active Substance: ERGOCALCIFEROL
  9. BOSENTAN. [Suspect]
     Active Substance: BOSENTAN
     Indication: PRODUCT USED FOR UNKNOWN INDICATION
     Route: 065
  10. GABAPENTIN. [Concomitant]
     Active Substance: GABAPENTIN
  11. IRON [Concomitant]
     Active Substance: IRON
  12. LASIX [Concomitant]
     Active Substance: FUROSEMIDE

REACTIONS (3)
  - Eyelid boil [Fatal]
  - Vision blurred [Fatal]
  - Death [Fatal]
